FAERS Safety Report 5604598-7 (Version None)
Quarter: 2008Q1

REPORT INFORMATION
  Report Type: 
  Country: None (occurrence: None)
  Receive Date: 20080124
  Receipt Date: 20080124
  Transmission Date: 20080703
  Serious: Yes (Hospitalization)
  Sender: FDA-Public Use
  Company Number: None

PATIENT
  Age: 75 Year
  Sex: Male
  Weight: 99.3 kg

DRUGS (2)
  1. FUROSEMIDE [Suspect]
     Indication: HYPERTENSION
     Dosage: 40MG  BID  PO
     Route: 048
     Dates: start: 20070222, end: 20080122
  2. TERAZOSIN HCL [Suspect]
     Dosage: 5MG  HS  PO
     Route: 048
     Dates: start: 19991207, end: 20080122

REACTIONS (1)
  - SYNCOPE [None]
